FAERS Safety Report 11767995 (Version 2)
Quarter: 2016Q2

REPORT INFORMATION
  Report Type: Spontaneous
  Country: US (occurrence: US)
  Receive Date: 20151123
  Receipt Date: 20160513
  Transmission Date: 20160815
  Serious: Yes (Other)
  Sender: FDA-Public Use
  Company Number: US-JNJFOC-20151011836

PATIENT
  Age: 37 Year
  Sex: Female

DRUGS (7)
  1. COGENTIN [Concomitant]
     Active Substance: BENZTROPINE MESYLATE
     Indication: PROPHYLAXIS
     Route: 065
     Dates: start: 201507, end: 201601
  2. TRAZODONE [Concomitant]
     Active Substance: TRAZODONE HYDROCHLORIDE
     Indication: INSOMNIA
     Dosage: FREQUENCY: PER HOUR OF SLEEP
     Route: 065
     Dates: start: 201507
  3. INVEGA SUSTENNA [Suspect]
     Active Substance: PALIPERIDONE PALMITATE
     Indication: SCHIZOPHRENIA
     Route: 030
     Dates: start: 20151104, end: 20151118
  4. TOPAMAX [Concomitant]
     Active Substance: TOPIRAMATE
     Indication: AFFECTIVE DISORDER
     Route: 048
     Dates: start: 201507, end: 201601
  5. INVEGA SUSTENNA [Suspect]
     Active Substance: PALIPERIDONE PALMITATE
     Indication: SCHIZOPHRENIA
     Route: 030
     Dates: start: 201507, end: 20151009
  6. PROLIXIN DECANOATE [Suspect]
     Active Substance: FLUPHENAZINE DECANOATE
     Indication: SCHIZOPHRENIA
     Route: 048
     Dates: end: 20150911
  7. ZOLOFT [Concomitant]
     Active Substance: SERTRALINE HYDROCHLORIDE
     Indication: DEPRESSION
     Route: 065
     Dates: start: 201507, end: 201601

REACTIONS (2)
  - Amenorrhoea [Recovered/Resolved with Sequelae]
  - Blood prolactin increased [Recovered/Resolved with Sequelae]

NARRATIVE: CASE EVENT DATE: 20150909
